FAERS Safety Report 9928286 (Version 1)
Quarter: 2014Q1

REPORT INFORMATION
  Report Type: Spontaneous
  Country: US (occurrence: None)
  Receive Date: 20140224
  Receipt Date: 20140224
  Transmission Date: 20141002
  Serious: Yes (Hospitalization)
  Sender: FDA-Public Use
  Company Number: 2014P1001369

PATIENT
  Age: 50 Year
  Sex: Male

DRUGS (1)
  1. PHENYTOIN [Suspect]
     Indication: CONVULSION

REACTIONS (12)
  - Anaemia [None]
  - Thrombocytopenia [None]
  - Blood lactate dehydrogenase increased [None]
  - Aphasia [None]
  - Mental status changes [None]
  - Drug reaction with eosinophilia and systemic symptoms [None]
  - Thrombotic thrombocytopenic purpura [None]
  - Alanine aminotransferase increased [None]
  - Aspartate aminotransferase increased [None]
  - Vasculitis [None]
  - Renal impairment [None]
  - Blood alkaline phosphatase increased [None]
